FAERS Safety Report 4821503-1 (Version None)
Quarter: 2005Q4

REPORT INFORMATION
  Report Type: 
  Country: None (occurrence: None)
  Receive Date: 20051107
  Receipt Date: 20051029
  Transmission Date: 20060501
  Serious: Yes (Other)
  Sender: FDA-Public Use
  Company Number: GB-GLAXOSMITHKLINE-B0398770A

PATIENT
  Sex: Male

DRUGS (15)
  1. AVODART [Suspect]
     Dosage: 500MCG PER DAY
     Route: 048
     Dates: start: 20051011, end: 20051016
  2. ATORVASTATIN CALCIUM [Concomitant]
     Dosage: 20MG PER DAY
     Route: 048
  3. THEOPHYLLINE [Concomitant]
     Dosage: 200MG PER DAY
     Route: 048
  4. ISOSORBIDE MONONITRATE [Concomitant]
     Dosage: 60MG PER DAY
     Route: 048
  5. DILTIAZEM HCL [Concomitant]
     Indication: HYPERTENSION
     Dosage: 300MG PER DAY
     Route: 048
  6. FUROSEMIDE [Concomitant]
     Dosage: 120MG PER DAY
     Route: 048
  7. ALLOPURINOL [Concomitant]
     Indication: GOUT
     Dosage: 100MG PER DAY
     Route: 048
  8. ALENDRONIC ACID [Concomitant]
     Indication: OSTEOPOROSIS
     Dosage: 70MG WEEKLY
     Route: 048
  9. LACTULOSE [Concomitant]
     Route: 065
  10. IPRATROPIUM BROMIDE [Concomitant]
     Route: 065
  11. SERETIDE [Concomitant]
  12. SALBUTAMOL [Concomitant]
  13. SENNA [Concomitant]
     Route: 065
  14. ACETAMINOPHEN [Concomitant]
     Route: 065
  15. OXYGEN [Concomitant]
     Route: 065

REACTIONS (2)
  - AGGRESSION [None]
  - SUICIDAL IDEATION [None]
